FAERS Safety Report 25618875 (Version 2)
Quarter: 2025Q3

REPORT INFORMATION
  Report Type: Spontaneous
  Country: TR (occurrence: TR)
  Receive Date: 20250729
  Receipt Date: 20250807
  Transmission Date: 20251020
  Serious: No
  Sender: SANDOZ
  Company Number: TR-SANDOZ-SDZ2025TR053828

PATIENT
  Sex: Female

DRUGS (1)
  1. HYRIMOZ [Suspect]
     Active Substance: ADALIMUMAB-ADAZ
     Indication: Rheumatic disorder
     Route: 065

REACTIONS (2)
  - Product substitution issue [Unknown]
  - Drug dose omission by device [Unknown]
